FAERS Safety Report 9510164 (Version 1)
Quarter: 2013Q3

REPORT INFORMATION
  Report Type: Spontaneous
  Country: US (occurrence: US)
  Receive Date: 20130909
  Receipt Date: 20130909
  Transmission Date: 20140515
  Serious: No
  Sender: FDA-Public Use
  Company Number: US-BRISTOL-MYERS SQUIBB COMPANY-18731471

PATIENT
  Age: 79 Year
  Sex: Female

DRUGS (4)
  1. ABILIFY [Suspect]
     Indication: ANXIETY
     Dosage: DOSE INCREASED TO 2 MG DAILY
     Dates: start: 201209
  2. ABILIFY [Suspect]
     Indication: DEPRESSION
     Dosage: DOSE INCREASED TO 2 MG DAILY
     Dates: start: 201209
  3. METFORMIN HCL [Suspect]
  4. NEXIUM [Concomitant]

REACTIONS (1)
  - Blood glucose increased [Unknown]
